FAERS Safety Report 7460032-6 (Version None)
Quarter: 2011Q2

REPORT INFORMATION
  Report Type: 
  Country: None (occurrence: None)
  Receive Date: 20110505
  Receipt Date: 20110427
  Transmission Date: 20111010
  Serious: Yes (Death, Hospitalization)
  Sender: FDA-Public Use
  Company Number: SA-MPIJNJ-2011-01107

PATIENT

DRUGS (4)
  1. REVLIMID [Suspect]
     Indication: MULTIPLE MYELOMA
     Dosage: UNK MG, CYCLIC
     Dates: start: 20101202
  2. VELCADE [Suspect]
     Dosage: 1 MG/M2, UNK
     Route: 065
  3. VELCADE [Suspect]
     Indication: MULTIPLE MYELOMA
     Dosage: 1.3 MG/M2, CYCLIC
     Route: 042
     Dates: start: 20101202
  4. DEXAMETHASONE [Suspect]
     Indication: MULTIPLE MYELOMA
     Dosage: 40 MG, CYCLIC
     Route: 048
     Dates: start: 20101202

REACTIONS (6)
  - DIABETES MELLITUS [None]
  - RESPIRATORY DISORDER [None]
  - RENAL IMPAIRMENT [None]
  - DIARRHOEA [None]
  - HYPERTENSION [None]
  - LYMPHADENOPATHY [None]
